FAERS Safety Report 6907532-2 (Version None)
Quarter: 2010Q3

REPORT INFORMATION
  Report Type: 
  Country: None (occurrence: None)
  Receive Date: 20100805
  Receipt Date: 20100728
  Transmission Date: 20110219
  Serious: No
  Sender: FDA-Public Use
  Company Number: US-BIOGENIDEC-2010BI025998

PATIENT
  Age: 65 Year
  Sex: Female

DRUGS (1)
  1. TYSABRI [Suspect]
     Indication: MULTIPLE SCLEROSIS
     Route: 042
     Dates: start: 20090227

REACTIONS (5)
  - DERMATITIS CONTACT [None]
  - GAIT DISTURBANCE [None]
  - INFUSION SITE HAEMATOMA [None]
  - INFUSION SITE REACTION [None]
  - JC VIRUS TEST POSITIVE [None]
